FAERS Safety Report 10186442 (Version 1)
Quarter: 2014Q2

REPORT INFORMATION
  Report Type: Spontaneous
  Country: US (occurrence: US)
  Receive Date: 20140521
  Receipt Date: 20140521
  Transmission Date: 20141212
  Serious: No
  Sender: FDA-Public Use
  Company Number: US-ASTRAZENECA-2014SE01995

PATIENT
  Sex: Male

DRUGS (3)
  1. PULMICORT FLEXHALER [Suspect]
     Indication: RESPIRATORY TRACT INFECTION
     Dosage: 180MCG  120 COUNT
     Route: 055
     Dates: start: 201401
  2. PULMICORT FLEXHALER [Suspect]
     Indication: ASTHMA
     Dosage: 180MCG  120 COUNT
     Route: 055
     Dates: start: 201401
  3. ADVAIR [Concomitant]

REACTIONS (3)
  - Cough [Not Recovered/Not Resolved]
  - Nervousness [Unknown]
  - Circumstance or information capable of leading to medication error [Unknown]
